FAERS Safety Report 7031254-3 (Version None)
Quarter: 2010Q4

REPORT INFORMATION
  Report Type: 
  Country: None (occurrence: None)
  Receive Date: 20101006
  Receipt Date: 20100929
  Transmission Date: 20110411
  Serious: Yes (Other)
  Sender: FDA-Public Use
  Company Number: A0884416A

PATIENT
  Sex: Female
  Weight: 80 kg

DRUGS (1)
  1. AROXAT [Suspect]
     Indication: MAJOR DEPRESSION
     Dosage: 750MG SINGLE DOSE
     Route: 065
     Dates: start: 20100101, end: 20100101

REACTIONS (3)
  - LIVER FUNCTION TEST ABNORMAL [None]
  - OVERDOSE [None]
  - SUICIDE ATTEMPT [None]
